FAERS Safety Report 15099765 (Version 1)
Quarter: 2018Q3

REPORT INFORMATION
  Report Type: Spontaneous
  Country: JP (occurrence: JP)
  Receive Date: 20180702
  Receipt Date: 20180702
  Transmission Date: 20181010
  Serious: Yes (Hospitalization, Other)
  Sender: FDA-Public Use
  Company Number: JP-ROCHE-2139556

PATIENT
  Age: 54 Year
  Sex: Male
  Weight: 88 kg

DRUGS (5)
  1. IRINOTECAN HYDROCHLORIDE TRIHYDRATE [Concomitant]
     Active Substance: IRINOTECAN HYDROCHLORIDE
     Indication: COLON CANCER
     Dosage: DOSAGE IS UNCERTAIN.?MOST RECENT DOSE: 28/MAY/2018
     Route: 041
     Dates: start: 20171106
  2. TS?1 [Concomitant]
     Active Substance: GIMERACIL\OTERACIL\TEGAFUR
     Indication: COLON CANCER
     Dosage: DOSAGE IS UNCERTAIN.?MOST RECENT DOSE: 28/MAY/2018
     Route: 048
     Dates: start: 20170905
  3. OXALIPLATIN. [Concomitant]
     Active Substance: OXALIPLATIN
     Indication: COLON CANCER
     Dosage: DOSAGE IS UNCERTAIN.?MOST RECENT DOSE: 17/OCT/2017
     Route: 041
     Dates: start: 20170905
  4. AVASTIN [Suspect]
     Active Substance: BEVACIZUMAB
     Indication: COLON CANCER
     Route: 041
     Dates: start: 20170905, end: 20171017
  5. AVASTIN [Suspect]
     Active Substance: BEVACIZUMAB
     Route: 041
     Dates: start: 20171106, end: 20180528

REACTIONS (4)
  - Tumour necrosis [Unknown]
  - Gastrointestinal perforation [Recovering/Resolving]
  - Intestinal obstruction [Unknown]
  - Hypoaesthesia [Unknown]

NARRATIVE: CASE EVENT DATE: 20180530
